FAERS Safety Report 7513829-8 (Version None)
Quarter: 2011Q2

REPORT INFORMATION
  Report Type: 
  Country: None (occurrence: None)
  Receive Date: 20110531
  Receipt Date: 20110518
  Transmission Date: 20111010
  Serious: Yes (Death)
  Sender: FDA-Public Use
  Company Number: US-UCBSA-033214

PATIENT
  Age: 60 Year
  Sex: Female

DRUGS (1)
  1. CIMZIA [Suspect]
     Route: 058
     Dates: start: 20101101

REACTIONS (1)
  - HEPATOSPLENIC T-CELL LYMPHOMA [None]
